FAERS Safety Report 16779034 (Version 1)
Quarter: 2019Q3

REPORT INFORMATION
  Report Type: Report from Study
  Country: IT (occurrence: IT)
  Receive Date: 20190906
  Receipt Date: 20190906
  Transmission Date: 20191005
  Serious: Yes (Life-Threatening)
  Sender: FDA-Public Use
  Company Number: IT-TEVA-2019-IT-1102469

PATIENT
  Age: 72 Year
  Sex: Female

DRUGS (6)
  1. ZOLPIDEM TARTRATE. [Suspect]
     Active Substance: ZOLPIDEM TARTRATE
     Indication: DRUG ABUSE
     Dosage: 200 MG
     Route: 048
     Dates: start: 20190610, end: 20190610
  2. CARDIOASPIRIN 100 MG COMPRESSE GASTRORESISTENTI [Suspect]
     Active Substance: ASPIRIN
     Indication: DRUG ABUSE
     Dosage: 1000 MG
     Route: 048
     Dates: start: 20190610, end: 20190610
  3. BIVIS 40 MG/10 MG COMPRESSE RIVESTITE CON FILM [Suspect]
     Active Substance: AMLODIPINE BESYLATE\OLMESARTAN MEDOXOMIL
     Indication: DRUG ABUSE
     Dosage: 40 MG / 10 MG; 14 DOSAGE FORMS
     Route: 048
     Dates: start: 20190610, end: 20190610
  4. ACETAMINOPHEN AND CODEINE [Suspect]
     Active Substance: ACETAMINOPHEN\CODEINE PHOSPHATE
     Indication: DRUG ABUSE
     Route: 048
     Dates: start: 20190610, end: 20190610
  5. CYMBALTA [Suspect]
     Active Substance: DULOXETINE HYDROCHLORIDE
     Indication: DRUG ABUSE
     Dosage: 1620 MG
     Route: 048
     Dates: start: 20190610, end: 20190610
  6. PALEXIA [Suspect]
     Active Substance: TAPENTADOL HYDROCHLORIDE
     Indication: DRUG ABUSE
     Dosage: 1600 MG
     Route: 048
     Dates: start: 20190610, end: 20190610

REACTIONS (3)
  - Loss of consciousness [Recovered/Resolved]
  - Drug abuse [Recovered/Resolved]
  - Toxicity to various agents [Recovered/Resolved]

NARRATIVE: CASE EVENT DATE: 20190610
